FAERS Safety Report 25924064 (Version 1)
Quarter: 2025Q4

REPORT INFORMATION
  Report Type: Report from Study
  Country: CN (occurrence: CN)
  Receive Date: 20251015
  Receipt Date: 20251015
  Transmission Date: 20260119
  Serious: Yes (Hospitalization, Other)
  Sender: CHEPLAPHARM
  Company Number: CN-CHEPLA-2025011691

PATIENT
  Age: 67 Year
  Sex: Male

DRUGS (13)
  1. CARBOPLATIN [Suspect]
     Active Substance: CARBOPLATIN
     Indication: Oesophageal squamous cell carcinoma
     Dosage: 9 CYCLES
     Dates: start: 202005
  2. CAPECITABINE [Suspect]
     Active Substance: CAPECITABINE
     Indication: Oesophageal squamous cell carcinoma
     Dosage: COMBINED WITH CAMRELIZUMAB
     Dates: start: 202302
  3. PACLITAXEL [Suspect]
     Active Substance: PACLITAXEL
     Indication: Oesophageal squamous cell carcinoma
     Dosage: 9 CYCLES
     Dates: start: 202005
  4. PACLITAXEL [Suspect]
     Active Substance: PACLITAXEL
     Indication: Oesophageal squamous cell carcinoma
     Dosage: 2 CYCLES
     Dates: start: 202109
  5. PACLITAXEL [Suspect]
     Active Substance: PACLITAXEL
     Indication: Oesophageal squamous cell carcinoma
     Dosage: ADDITIONAL 5 CYCLES
     Dates: start: 202109
  6. PACLITAXEL [Suspect]
     Active Substance: PACLITAXEL
     Indication: Oesophageal squamous cell carcinoma
     Dosage: 2 CYCLES; 200 MG ON DAY 1
     Dates: start: 20231113, end: 202312
  7. CISPLATIN [Suspect]
     Active Substance: CISPLATIN
     Indication: Oesophageal squamous cell carcinoma
     Dosage: 2 CYCLES
     Dates: start: 202109
  8. CAMRELIZUMAB [Suspect]
     Active Substance: CAMRELIZUMAB
     Indication: Oesophageal squamous cell carcinoma
     Dosage: 3 CYCLES
     Dates: start: 202109
  9. CAMRELIZUMAB [Suspect]
     Active Substance: CAMRELIZUMAB
     Indication: Oesophageal squamous cell carcinoma
     Dosage: ADDITIONAL 5 CYCLES
     Dates: start: 202109
  10. CAMRELIZUMAB [Suspect]
     Active Substance: CAMRELIZUMAB
     Indication: Oesophageal squamous cell carcinoma
     Dosage: 6 CYCLES WITH DOCETAXEL
     Dates: start: 202207, end: 202211
  11. DOCETAXEL [Suspect]
     Active Substance: DOCETAXEL
     Indication: Oesophageal squamous cell carcinoma
     Dosage: 6 CYCLES WITH CAMRELIZUMAB
     Dates: start: 202207, end: 202211
  12. TISLELIZUMAB [Suspect]
     Active Substance: TISLELIZUMAB
     Indication: Oesophageal squamous cell carcinoma
     Dosage: 2 CYCLES; 200 MG ON DAY 1
     Dates: start: 20231113, end: 202312
  13. TS-1 [Suspect]
     Active Substance: GIMERACIL\OTERACIL POTASSIUM\TEGAFUR
     Indication: Oesophageal squamous cell carcinoma

REACTIONS (9)
  - Small intestinal obstruction [Recovering/Resolving]
  - Anaemia [Unknown]
  - Pruritus [Unknown]
  - Chest discomfort [Unknown]
  - Dyspnoea [Unknown]
  - Fatigue [Unknown]
  - Cough [Unknown]
  - Off label use [Unknown]
  - Product dose omission in error [Recovered/Resolved]

NARRATIVE: CASE EVENT DATE: 20210901
